FAERS Safety Report 6914745-2 (Version None)
Quarter: 2010Q3

REPORT INFORMATION
  Report Type: 
  Country: None (occurrence: None)
  Receive Date: 20100809
  Receipt Date: 20100729
  Transmission Date: 20110219
  Serious: Yes (Hospitalization)
  Sender: FDA-Public Use
  Company Number: US-ASTRAZENECA-2010SE35497

PATIENT
  Age: 69 Year
  Sex: Female

DRUGS (5)
  1. CRESTOR [Suspect]
     Route: 048
  2. PLAVIX [Concomitant]
  3. LOPRESSOR [Concomitant]
  4. PREDNISONE [Concomitant]
  5. INSULIN [Concomitant]

REACTIONS (6)
  - BLOOD CREATINE PHOSPHOKINASE INCREASED [None]
  - HEPATIC FAILURE [None]
  - MYALGIA [None]
  - MYOGLOBIN URINE PRESENT [None]
  - PARALYSIS [None]
  - PROTHROMBIN TIME PROLONGED [None]
